FAERS Safety Report 13902070 (Version 1)
Quarter: 2017Q3

REPORT INFORMATION
  Report Type: Other
  Country: CA (occurrence: CA)
  Receive Date: 20170824
  Receipt Date: 20170824
  Transmission Date: 20171127
  Serious: Yes (Other)
  Sender: FDA-Public Use
  Company Number: CA-APOTEX-2017AP016842

PATIENT

DRUGS (2)
  1. APO-RAMIPRIL [Suspect]
     Active Substance: RAMIPRIL
     Indication: MYOCARDIAL INFARCTION
     Dosage: UNK
     Route: 065
  2. EPINEPHRINE. [Suspect]
     Active Substance: EPINEPHRINE
     Indication: ANGIOEDEMA
     Dosage: UNK
     Route: 030

REACTIONS (3)
  - Angina pectoris [Recovering/Resolving]
  - Ventricular extrasystoles [Recovering/Resolving]
  - Angioedema [Recovering/Resolving]
